FAERS Safety Report 22630802 (Version 1)
Quarter: 2023Q2

REPORT INFORMATION
  Report Type: Spontaneous
  Country: US (occurrence: US)
  Receive Date: 20230622
  Receipt Date: 20230622
  Transmission Date: 20230721
  Serious: No
  Sender: FDA-Public Use
  Company Number: US-JNJFOC-20230632570

PATIENT
  Age: 42 Year
  Sex: Male

DRUGS (2)
  1. ZYRTEC [Suspect]
     Active Substance: CETIRIZINE HYDROCHLORIDE
     Indication: Rash pruritic
     Route: 065
  2. DUPILUMAB [Suspect]
     Active Substance: DUPILUMAB
     Indication: Dermatitis atopic
     Dosage: LOADING DOSE OF 600MG 1X AND FOLLOWED BY 300 MG?600MG LOADING DOSE THEN 300MG EVERY WEEK
     Route: 058

REACTIONS (2)
  - Somnolence [Unknown]
  - Off label use [Unknown]
